FAERS Safety Report 12093067 (Version 1)
Quarter: 2016Q1

REPORT INFORMATION
  Report Type: Spontaneous
  Country: US (occurrence: US)
  Receive Date: 20160219
  Receipt Date: 20160219
  Transmission Date: 20160526
  Serious: No
  Sender: FDA-Public Use
  Company Number: US-PFIZER INC-2016092214

PATIENT
  Age: 68 Year
  Sex: Male

DRUGS (1)
  1. XALKORI [Suspect]
     Active Substance: CRIZOTINIB
     Indication: LUNG CANCER METASTATIC
     Dosage: 250 MG, 2X/DAY

REACTIONS (7)
  - Oscillopsia [Unknown]
  - Hypermetabolism [Unknown]
  - Respiratory tract congestion [Unknown]
  - Haemoptysis [Unknown]
  - Nausea [Recovered/Resolved]
  - Lung disorder [Unknown]
  - Cough [Unknown]
